FAERS Safety Report 7127257-0 (Version None)
Quarter: 2010Q4

REPORT INFORMATION
  Report Type: 
  Country: None (occurrence: None)
  Receive Date: 20101129
  Receipt Date: 20101112
  Transmission Date: 20110411
  Serious: Yes (Hospitalization, Other)
  Sender: FDA-Public Use
  Company Number: US-AMGEN-KDL435583

PATIENT

DRUGS (6)
  1. NEULASTA [Suspect]
     Indication: CHEMOTHERAPY
     Dosage: 6 MG, UNK
     Dates: start: 20100721
  2. DOCETAXEL [Concomitant]
     Dosage: UNK
     Dates: start: 20100721
  3. DOXORUBICIN HCL [Concomitant]
     Dosage: UNK
     Dates: start: 20100721
  4. CYCLOPHOSPHAMIDE [Concomitant]
     Dosage: UNK
     Dates: start: 20100721
  5. RELPAX [Concomitant]
  6. PRILOSEC [Concomitant]

REACTIONS (2)
  - COLITIS [None]
  - FEBRILE NEUTROPENIA [None]
